FAERS Safety Report 9826451 (Version 1)
Quarter: 2014Q1

REPORT INFORMATION
  Report Type: Spontaneous
  Country: US (occurrence: US)
  Receive Date: 20140117
  Receipt Date: 20140117
  Transmission Date: 20141002
  Serious: No
  Sender: FDA-Public Use
  Company Number: US-BIOGENIDEC-2014BI003102

PATIENT
  Age: 59 Year
  Sex: Male
  Weight: 97 kg

DRUGS (9)
  1. TECFIDERA [Suspect]
     Indication: PRODUCT USED FOR UNKNOWN INDICATION
     Route: 048
  2. TECFIDERA [Suspect]
     Indication: PRODUCT USED FOR UNKNOWN INDICATION
     Route: 048
  3. SOLUMEDROL [Concomitant]
     Route: 042
  4. BENADRYL [Concomitant]
     Route: 048
  5. ADVIL [Concomitant]
     Route: 048
  6. PREDNISONE [Concomitant]
     Route: 048
  7. ALKA SELTZER [Concomitant]
  8. MUCINEX [Concomitant]
     Route: 048
  9. TYLENOL [Concomitant]
     Route: 048

REACTIONS (3)
  - Nasopharyngitis [Unknown]
  - Flushing [Unknown]
  - Abdominal pain [Unknown]
